FAERS Safety Report 25336842 (Version 2)
Quarter: 2025Q2

REPORT INFORMATION
  Report Type: Spontaneous
  Country: US (occurrence: US)
  Receive Date: 20250520
  Receipt Date: 20250526
  Transmission Date: 20250717
  Serious: No
  Sender: ELI LILLY AND COMPANY
  Company Number: US-ELI_LILLY_AND_COMPANY-US202505015689

PATIENT
  Age: 77 Year
  Sex: Female

DRUGS (4)
  1. FORTEO [Suspect]
     Active Substance: TERIPARATIDE
     Indication: Product used for unknown indication
     Route: 065
     Dates: start: 20250315
  2. FORTEO [Suspect]
     Active Substance: TERIPARATIDE
     Indication: Product used for unknown indication
     Route: 065
     Dates: start: 20250315
  3. FORTEO [Suspect]
     Active Substance: TERIPARATIDE
     Route: 065
  4. FORTEO [Suspect]
     Active Substance: TERIPARATIDE
     Route: 065

REACTIONS (3)
  - Foot fracture [Unknown]
  - Drug dose omission by device [Unknown]
  - Injection site bruising [Unknown]
